FAERS Safety Report 8829108 (Version 3)
Quarter: 2013Q2

REPORT INFORMATION
  Report Type: Spontaneous
  Country: CA (occurrence: CA)
  Receive Date: 20121008
  Receipt Date: 20130502
  Transmission Date: 20140414
  Serious: Yes (Life-Threatening, Hospitalization, Other)
  Sender: FDA-Public Use
  Company Number: CHPA2012CA020712

PATIENT
  Age: 32 Year
  Sex: Female

DRUGS (99)
  1. MAALOX ANTACID WITH ANTI-GAS REGULAR [Suspect]
     Indication: DYSPEPSIA
     Dosage: 6 TSP, QID, PRN
     Dates: start: 20110601, end: 20110624
  2. MAALOX ANTACID WITH ANTI-GAS REGULAR [Suspect]
     Dosage: 6 TSP, Q4H, PRN
     Route: 048
     Dates: start: 20110525, end: 20110530
  3. MAALOX ANTACID WITH ANTI-GAS REGULAR [Suspect]
     Dosage: UNK DF ONCE
     Dates: start: 20110526, end: 20110526
  4. TYLENOL [Suspect]
     Indication: PREMEDICATION
     Dosage: 650 MG, Q6H
     Route: 048
     Dates: start: 20110601, end: 20110715
  5. TYLENOL [Suspect]
     Dosage: 650 MG, Q6H
     Route: 054
     Dates: start: 20110601, end: 20110715
  6. TYLENOL [Suspect]
     Dosage: 650 MG, UNK
     Route: 048
     Dates: start: 20110601, end: 20110630
  7. TYLENOL [Suspect]
     Dosage: 650 MG, QD
     Route: 048
     Dates: start: 20110601, end: 20110628
  8. TYLENOL [Suspect]
     Dosage: 650 MG, ONCE/SINGLE
     Route: 048
     Dates: start: 20110530, end: 20110530
  9. TYLENOL [Suspect]
     Dosage: 625 MG, Q6H, PRN
     Dates: start: 20110531
  10. TYLENOL [Suspect]
     Dosage: 650 MG, BID
     Dates: start: 20110606, end: 20110606
  11. TYLENOL [Suspect]
     Dosage: 325 MG TO 650 MG, Q4H, PRN
     Route: 048
     Dates: start: 20110521, end: 20110527
  12. TYLENOL [Suspect]
     Dosage: UNK, ONCE
     Dates: start: 20110526, end: 20110526
  13. CLINDAMYCIN [Concomitant]
     Dosage: 600 MG, UNK
     Route: 042
     Dates: start: 20110529, end: 20110702
  14. FENTANYL [Concomitant]
     Dosage: 300 UG, UNK
     Route: 042
     Dates: start: 20110531
  15. FENTANYL [Concomitant]
     Dosage: 200 UG, UNK
     Route: 042
     Dates: start: 20110529
  16. GLYCOPYRROLATE [Concomitant]
     Dosage: 0.4 MG, UNK
     Route: 042
     Dates: start: 20110529, end: 20110702
  17. MIDAZOLAM [Concomitant]
     Dosage: 1 MG, UNK
     Route: 042
     Dates: start: 20110529
  18. NEOSTIGMINE [Concomitant]
     Dosage: 2.5 MG, UNK
     Route: 042
     Dates: start: 20110529, end: 20110702
  19. PROPOFOL [Concomitant]
     Dosage: 200 MG, UNK
     Route: 042
     Dates: start: 20110529
  20. PROPOFOL [Concomitant]
     Dosage: 100 MG, UNK
     Dates: start: 20110702, end: 20110702
  21. ROCURONIUM [Concomitant]
     Dosage: 30 MG, UNK
     Route: 042
     Dates: start: 20110702
  22. ROCURONIUM [Concomitant]
     Dosage: 60 MG, UNK
     Route: 042
     Dates: start: 20110529
  23. CALCIUM GLUCONATE [Concomitant]
     Dosage: 1000 MG, UNK
     Route: 042
     Dates: start: 20110531
  24. CALCIUM GLUCONATE [Concomitant]
     Dosage: 1 MG, QD
     Route: 042
     Dates: start: 20110522, end: 20110523
  25. CISATRACURIUM [Concomitant]
     Dosage: 6 MG, UNK
     Route: 042
     Dates: start: 20110531
  26. DIMENHYDRINATE [Concomitant]
     Dosage: 25 MG -50 MG, Q4H, PRN
     Route: 048
     Dates: start: 20110520, end: 20110529
  27. HYDROCORTISONE [Concomitant]
     Dosage: 100 MG, UNK
     Route: 042
     Dates: start: 20110531, end: 20110702
  28. SUFENTANIL [Concomitant]
     Dosage: 35 UG, UNK
     Route: 042
     Dates: start: 20110702
  29. SUCCINYLCHOLINE [Concomitant]
     Dosage: 80 MG, UNK
     Route: 042
     Dates: start: 20110702
  30. BUPIVACAINE W/EPINEPHRINE [Concomitant]
     Dosage: 20 ML, UNK
     Dates: start: 20110529
  31. MYCOPHENOLATE MOFETIL [Concomitant]
     Dosage: 500 MG, BID
     Route: 048
     Dates: start: 20110708, end: 20110711
  32. MYCOPHENOLATE MOFETIL [Concomitant]
     Dosage: 750 MG, BID
     Route: 048
     Dates: start: 20110629, end: 20110630
  33. MYCOPHENOLATE MOFETIL [Concomitant]
     Dosage: 1500 MG, Q12H
     Route: 042
     Dates: start: 20110523, end: 20110524
  34. MYCOPHENOLATE MOFETIL [Concomitant]
     Dosage: 1500 MG, BID
     Route: 042
     Dates: start: 20110525, end: 20110525
  35. MYCOPHENOLATE MOFETIL [Concomitant]
     Dosage: 1000 MG, Q12H
     Route: 042
     Dates: start: 20110525, end: 20110622
  36. COLACE [Concomitant]
     Dosage: 200 MG, BID
     Route: 048
     Dates: start: 20110616, end: 20110710
  37. COLACE [Concomitant]
     Dosage: 100 MG, BID
     Route: 054
     Dates: start: 20110601, end: 20110614
  38. COLACE [Concomitant]
     Dosage: 100 MG, TID
     Route: 048
     Dates: start: 20110601
  39. COLACE [Concomitant]
     Dosage: 100 MG, BID
     Route: 048
     Dates: start: 20110520, end: 20110607
  40. SYNTHROID [Concomitant]
     Dosage: 200 UG, QD
     Route: 048
     Dates: start: 20110522, end: 20110712
  41. VITAMIN K [Concomitant]
     Dosage: 10 MG, QD
     Route: 048
     Dates: start: 20110523, end: 20110525
  42. SOLU-MEDROL [Concomitant]
     Dosage: 40 MG, Q8H
     Route: 042
     Dates: start: 20110601, end: 20110601
  43. SOLU-MEDROL [Concomitant]
     Dosage: 20 MG, Q8H
     Route: 042
     Dates: start: 20110523, end: 20110606
  44. ZANTAC [Concomitant]
     Dosage: 150 MG, QD
     Dates: start: 20110615, end: 20110712
  45. ZANTAC [Concomitant]
     Dosage: 50 MG, QD
     Route: 042
     Dates: start: 20110524, end: 20110525
  46. ZANTAC [Concomitant]
     Dosage: 50 MG, TID
     Dates: start: 20110524, end: 20110525
  47. ZANTAC [Concomitant]
     Dosage: 75 MG, ONCE/SINGLE
     Route: 042
     Dates: start: 20110523
  48. TACROLIMUS [Concomitant]
     Dosage: 5 MG, BID
     Route: 048
     Dates: start: 20110524, end: 20110528
  49. TACROLIMUS [Concomitant]
     Dosage: 2 MG, ONCE/SINGLE
     Route: 048
     Dates: start: 20110528, end: 20110528
  50. TACROLIMUS [Concomitant]
     Dosage: 3 MG, BID
     Route: 048
     Dates: start: 20110529, end: 20110530
  51. ACYCLOVIR [Concomitant]
     Dosage: 400 MG, QD
     Route: 048
     Dates: start: 20110527, end: 20110607
  52. ACYCLOVIR [Concomitant]
     Dosage: 400 MG, BID
     Route: 048
     Dates: start: 20110524, end: 20110608
  53. PANTOLOC//PANTOPRAZOLE SODIUM SESQUIHYDRATE [Concomitant]
     Dosage: 40 MG, Q12H
     Route: 042
     Dates: start: 20110526, end: 20110606
  54. DEXTROSE IN WATER [Concomitant]
     Dosage: 1000 ML, ONCE/SINGLE
     Route: 042
     Dates: start: 20110529, end: 20110529
  55. DEXTROSE IN WATER [Concomitant]
     Dosage: 500 G, ONCE/SINGLE
     Route: 042
     Dates: start: 20110528, end: 20110528
  56. DEXTROSE IN WATER [Concomitant]
     Dosage: 200 ML, ONCE/SINGLE
     Route: 042
     Dates: start: 20110528, end: 20110528
  57. ALBUMIN [Concomitant]
     Dosage: 100 ML, BID
     Dates: start: 20110529, end: 20110529
  58. ATG                                     /BEL/ [Concomitant]
     Dosage: 25 OR 50 MG, QD
     Dates: start: 20110601, end: 20110613
  59. ATG                                     /BEL/ [Concomitant]
     Dosage: 75 MG, ONCE/SINGLE
     Route: 042
     Dates: start: 20110530, end: 20110530
  60. METHYLPREDISOLONE [Concomitant]
     Dosage: 30 MG, ONCE/SINGLE
     Route: 042
     Dates: start: 20110530, end: 20110530
  61. DDAVP                                   /USA/ [Concomitant]
     Dosage: 20 UG, UNK
     Route: 042
     Dates: start: 20110531, end: 20110712
  62. TRAZODONE [Concomitant]
     Dosage: 25 MG, QHS, PRN
     Dates: start: 20110531
  63. ATROVENT [Concomitant]
     Dosage: 20 UG, Q4-8H, PRN
  64. VENTOLIN                           /00942701/ [Concomitant]
     Dosage: 100 UNK, UNK
  65. MAGNESIUM SULFATE [Concomitant]
     Dosage: 2 G, UNK
     Route: 042
     Dates: start: 20110531, end: 20110705
  66. METACLOPRAMIDE [Concomitant]
     Dosage: 10 MG, Q6H, PRN
     Route: 042
     Dates: start: 20110602, end: 20110606
  67. SENNA [Concomitant]
     Dosage: 17.2 MG, QHS
     Route: 048
     Dates: start: 20110601, end: 20110614
  68. SENNA [Concomitant]
     Dosage: 17.2 MG, QHS
     Route: 054
     Dates: start: 20110601, end: 20110607
  69. RABEPRAZOLE [Concomitant]
     Dosage: 20 MG, BID
     Route: 048
     Dates: start: 20110606, end: 20110607
  70. DULCOLAX [Concomitant]
     Dosage: UNK, UNK
     Route: 054
     Dates: start: 20110608, end: 20110614
  71. PENTAMIDINE [Concomitant]
     Dosage: 300 MG, EVERY 4 WEEK
     Dates: start: 20110613
  72. SALBUTAMOL [Concomitant]
     Dosage: 2 PUFFS, 15 MINUTES PRIOR TO PENTAMIDINE
     Dates: start: 20110613
  73. SOLU CORTEF [Concomitant]
     Indication: PREMEDICATION
     Dosage: 100 MG, UNK
     Route: 042
     Dates: start: 20110609, end: 20110625
  74. RAPAMYCIN [Concomitant]
     Dosage: 9 MG, QD
     Route: 048
     Dates: start: 20110620, end: 20110630
  75. RAPAMYCIN [Concomitant]
     Dosage: 8 UNK, UNK
     Route: 048
     Dates: start: 20110618, end: 20110619
  76. RAPAMYCIN [Concomitant]
     Dosage: 5 MG, QD
     Route: 048
     Dates: start: 20110613, end: 20110617
  77. ZOPICLONE [Concomitant]
     Dosage: 5 MG, QHS, PRN
     Route: 048
     Dates: start: 20110619, end: 20110621
  78. MOTILIUM ^BYK GULDEN^ [Concomitant]
     Dosage: 10 MG, BID
     Dates: start: 20110616, end: 20110712
  79. RESOURCE PLUS [Concomitant]
     Dosage: 250 ML, TID
     Dates: start: 20110616, end: 20110712
  80. ARANESP [Concomitant]
     Dosage: 100 MG, EVERY 2 WEEKS
     Route: 042
     Dates: start: 20110622, end: 20110705
  81. RITUXIMAB [Concomitant]
     Dosage: 600 MG, WEEKLY
     Route: 042
     Dates: start: 20110630, end: 20110708
  82. SIROLIMUS [Concomitant]
     Dosage: 10 MG, QD
     Route: 048
     Dates: start: 20110709, end: 20110712
  83. SIROLIMUS [Concomitant]
     Dosage: 9 UNK, UNK
     Route: 048
     Dates: start: 20110706, end: 20110709
  84. SIROLIMUS [Concomitant]
     Dosage: 6 MG, QD
     Route: 048
     Dates: start: 20110701, end: 20110705
  85. MEROPENEM [Concomitant]
     Dosage: 500 MG, UNK
     Route: 042
     Dates: start: 20110702, end: 20110702
  86. IMIPENEM CILASTATINE [Concomitant]
     Dosage: 500 MG, Q12H
     Dates: start: 20110702, end: 20110712
  87. SODIUM PHOSPHATE [Concomitant]
     Dosage: 15 MMOL, ONCE/SINGLE
     Route: 042
     Dates: start: 20110704, end: 20110704
  88. TUMS [Concomitant]
     Dosage: 1 UNK, TID
     Route: 048
     Dates: start: 20110706, end: 20110711
  89. VALGANCICLOVIR [Concomitant]
     Dosage: 450 MG, QOD
     Route: 048
     Dates: start: 20110707, end: 20110707
  90. METOPROLOL [Concomitant]
     Dosage: 50 MG, BID
     Route: 048
     Dates: start: 20110711, end: 20110712
  91. STEMETIL//PROCHLORPERAZINE [Concomitant]
     Dosage: UNK, UNK
  92. LOSEC                                   /CAN/ [Concomitant]
     Dosage: UNK, UNK
  93. DILTIAZEM [Concomitant]
     Indication: BLOOD PRESSURE INCREASED
     Dosage: UNK, UNK
  94. PARIET [Concomitant]
     Dosage: UNK, UNK
  95. MOTILIUM//DOMPERIDONE [Concomitant]
     Dosage: UNK, UNK
  96. GASTROGRAFIN [Concomitant]
     Dosage: UNK, UNK
  97. TISSUE PLASMINOGEN ACTIVATOR, RECOMBINATIVE [Concomitant]
     Dosage: UNK, UNK
  98. AMLODIPINE [Concomitant]
     Dosage: UNK, UNK
  99. REPLIVA [Concomitant]
     Dosage: UNK, UNK

REACTIONS (108)
  - Renal failure [Not Recovered/Not Resolved]
  - Visual impairment [Recovered/Resolved]
  - Platelet count decreased [Unknown]
  - Anxiety [Unknown]
  - Peritoneal haemorrhage [Unknown]
  - Pyrexia [Recovered/Resolved]
  - Thrombotic microangiopathy [Unknown]
  - Fatigue [Unknown]
  - Dysuria [Unknown]
  - Oedema [Unknown]
  - Tenderness [Unknown]
  - Haemolytic uraemic syndrome [Unknown]
  - White blood cell count decreased [Recovered/Resolved]
  - Abdominal pain [Unknown]
  - Abdominal distension [Unknown]
  - Haemoglobin decreased [Unknown]
  - Abscess [Unknown]
  - Haematoma infection [Unknown]
  - Restlessness [Unknown]
  - Anaemia [Recovered/Resolved]
  - Sinus tachycardia [Recovered/Resolved]
  - Bladder spasm [Unknown]
  - Generalised oedema [Unknown]
  - Malaise [Unknown]
  - Decreased appetite [Recovered/Resolved]
  - Discomfort [Unknown]
  - Musculoskeletal discomfort [Unknown]
  - Walking aid user [Recovered/Resolved]
  - Oedema peripheral [Unknown]
  - Renal pain [Recovered/Resolved]
  - Haematoma [Recovered/Resolved]
  - Breath sounds abnormal [Recovered/Resolved]
  - Thrombosis [Recovered/Resolved]
  - Haematuria [Unknown]
  - Contusion [Unknown]
  - Blister [Unknown]
  - Poor quality sleep [Recovered/Resolved]
  - Hypertension [Unknown]
  - Device leakage [Recovered/Resolved]
  - Asthenia [Unknown]
  - Liver function test abnormal [Recovered/Resolved]
  - Urine output decreased [Recovered/Resolved]
  - Claustrophobia [Unknown]
  - Chills [Recovered/Resolved]
  - Tremor [Recovered/Resolved]
  - Headache [Unknown]
  - Enterococcus test positive [Unknown]
  - Hypotension [Recovered/Resolved]
  - Platelet disorder [Unknown]
  - Haemorrhage [Unknown]
  - Ecchymosis [Unknown]
  - Dyspnoea [Recovered/Resolved]
  - Cardiac murmur [Unknown]
  - Chest pain [Recovered/Resolved]
  - Bradycardia [Recovered/Resolved]
  - Blood potassium decreased [Recovered/Resolved]
  - Burning sensation [Unknown]
  - Irritability [Unknown]
  - Body temperature increased [Recovered/Resolved]
  - Malnutrition [Unknown]
  - Weight decreased [Unknown]
  - Cytomegalovirus test positive [Unknown]
  - Bacterial infection [Unknown]
  - Kidney transplant rejection [Recovered/Resolved]
  - Neutropenia [Unknown]
  - Dizziness [Unknown]
  - Cough [Unknown]
  - Oropharyngeal pain [Unknown]
  - Grand mal convulsion [Unknown]
  - Rhinorrhoea [Unknown]
  - Sepsis [Recovered/Resolved]
  - Pancytopenia [Recovered/Resolved]
  - Back pain [Unknown]
  - Palpitations [Recovered/Resolved]
  - Heart rate increased [Unknown]
  - Blood pressure increased [Unknown]
  - Clostridium difficile colitis [Unknown]
  - Localised oedema [Unknown]
  - Gastrointestinal disorder [Unknown]
  - Splenomegaly [Unknown]
  - Lymphocele [Unknown]
  - Pleural effusion [Unknown]
  - Posterior reversible encephalopathy syndrome [Unknown]
  - Bacterial disease carrier [Unknown]
  - Candida infection [Unknown]
  - Diphtheria [Unknown]
  - Ureaplasma test positive [Unknown]
  - Retroperitoneal abscess [Unknown]
  - Microangiopathic haemolytic anaemia [Unknown]
  - Pneumonia [Unknown]
  - Bacteriuria [Unknown]
  - Leukopenia [Unknown]
  - Pain [Unknown]
  - Ulcer [Unknown]
  - Colitis ischaemic [Unknown]
  - Gastroenteritis [Unknown]
  - Arthralgia [Unknown]
  - Atelectasis [Unknown]
  - Cushingoid [Unknown]
  - Depressed mood [Unknown]
  - Abdominal pain upper [Recovered/Resolved]
  - Nausea [Unknown]
  - Diarrhoea [Unknown]
  - Abdominal discomfort [Unknown]
  - Vomiting [Unknown]
  - Pruritus [Recovered/Resolved]
  - Incorrect route of drug administration [Unknown]
  - Incorrect dose administered [Unknown]
